FAERS Safety Report 19220077 (Version 1)
Quarter: 2021Q2

REPORT INFORMATION
  Report Type: Spontaneous
  Country: US (occurrence: US)
  Receive Date: 20210506
  Receipt Date: 20210506
  Transmission Date: 20210717
  Serious: Yes (Other)
  Sender: FDA-Public Use
  Company Number: NVSC2021US099898

PATIENT

DRUGS (5)
  1. CYCLOPHOSPHAMIDE. [Suspect]
     Active Substance: CYCLOPHOSPHAMIDE
     Indication: DIFFUSE LARGE B-CELL LYMPHOMA STAGE IV
     Dosage: 6 CYCLES
     Route: 065
     Dates: start: 20200401, end: 20200715
  2. VINCRISTINE [Suspect]
     Active Substance: VINCRISTINE
     Indication: DIFFUSE LARGE B-CELL LYMPHOMA STAGE IV
     Dosage: 6 CYCLES
     Route: 065
     Dates: start: 20200401, end: 20200715
  3. RITUXAN [Suspect]
     Active Substance: RITUXIMAB
     Indication: DIFFUSE LARGE B-CELL LYMPHOMA STAGE IV
     Dosage: 6 CYCLES
     Route: 065
     Dates: start: 20200401, end: 20200715
  4. PREDNISONE. [Suspect]
     Active Substance: PREDNISONE
     Indication: DIFFUSE LARGE B-CELL LYMPHOMA STAGE IV
     Dosage: 6 CYCLES
     Route: 065
     Dates: start: 20200401, end: 20200715
  5. DOXORUBICIN [Suspect]
     Active Substance: DOXORUBICIN
     Indication: DIFFUSE LARGE B-CELL LYMPHOMA STAGE IV
     Dosage: 6 CYCLES
     Route: 065
     Dates: start: 20200401, end: 20200715

REACTIONS (4)
  - Metastases to bone [Unknown]
  - Diffuse large B-cell lymphoma stage IV [Unknown]
  - Malignant neoplasm progression [Unknown]
  - Metastases to muscle [Unknown]

NARRATIVE: CASE EVENT DATE: 20201228
